FAERS Safety Report 19292416 (Version 1)
Quarter: 2021Q2

REPORT INFORMATION
  Report Type: Report from Study
  Country: None (occurrence: CA)
  Receive Date: 20210524
  Receipt Date: 20210524
  Transmission Date: 20210717
  Serious: Yes (Other)
  Sender: FDA-Public Use
  Company Number: CA-ABBVIE-21K-028-3915011-00

PATIENT
  Sex: Male

DRUGS (4)
  1. HUMIRA [Suspect]
     Active Substance: ADALIMUMAB
     Indication: CROHN^S DISEASE
     Route: 058
     Dates: start: 20070621
  2. HUMIRA [Suspect]
     Active Substance: ADALIMUMAB
     Route: 058
  3. HUMIRA [Suspect]
     Active Substance: ADALIMUMAB
     Route: 058
  4. VITAMIN B12 [Suspect]
     Active Substance: CYANOCOBALAMIN
     Indication: PRODUCT USED FOR UNKNOWN INDICATION
     Route: 048

REACTIONS (17)
  - Ileectomy [Unknown]
  - Fatigue [Unknown]
  - Headache [Unknown]
  - Injection site irritation [Not Recovered/Not Resolved]
  - Crohn^s disease [Unknown]
  - Influenza like illness [Unknown]
  - Ankylosing spondylitis [Unknown]
  - Abdominal discomfort [Not Recovered/Not Resolved]
  - Malaise [Unknown]
  - Stress [Unknown]
  - Drug dependence [Unknown]
  - Immunodeficiency [Unknown]
  - Ulcer [Recovered/Resolved]
  - Intentional product misuse [Unknown]
  - Discomfort [Not Recovered/Not Resolved]
  - Unevaluable event [Not Recovered/Not Resolved]
  - Injection site pain [Not Recovered/Not Resolved]

NARRATIVE: CASE EVENT DATE: 2020
